FAERS Safety Report 4312595-7 (Version None)
Quarter: 2004Q1

REPORT INFORMATION
  Report Type: 
  Country: None (occurrence: None)
  Receive Date: 20040302
  Receipt Date: 20031229
  Transmission Date: 20041129
  Serious: No
  Sender: FDA-Public Use
  Company Number: 200331060BWH

PATIENT
  Age: 67 Year
  Sex: Male

DRUGS (11)
  1. LEVITRA [Suspect]
     Indication: ERECTILE DYSFUNCTION
     Dosage: 20 MG TOTAL DAILY ORAL
     Route: 048
     Dates: start: 20031101
  2. LIPITOR [Concomitant]
  3. VIAGRA [Concomitant]
  4. TESTOSTERONE [Concomitant]
  5. ANDROGEL [Concomitant]
  6. VITAMIN C [Concomitant]
  7. RUTIN-C [Concomitant]
  8. DMAE [Concomitant]
  9. ACETYL L CARNITINE [Concomitant]
  10. ALPHA LIPOIC ACID [Concomitant]
  11. ALFALFA [Concomitant]

REACTIONS (1)
  - ERECTILE DYSFUNCTION [None]
